FAERS Safety Report 6315569-X (Version None)
Quarter: 2009Q3

REPORT INFORMATION
  Report Type: 
  Country: None (occurrence: None)
  Receive Date: 20090818
  Receipt Date: 20090525
  Transmission Date: 20100115
  Serious: Yes (Other)
  Sender: FDA-Public Use
  Company Number: 2009008790

PATIENT
  Age: 60 Year
  Sex: Male

DRUGS (2)
  1. TRISENOX [Suspect]
     Indication: ACUTE PROMYELOCYTIC LEUKAEMIA
     Dosage: INTRAVENOUS DRIP
     Route: 041
  2. METHOTREXATE [Suspect]

REACTIONS (4)
  - APLASIA [None]
  - PULMONARY FIBROSIS [None]
  - RETINOIC ACID SYNDROME [None]
  - SEPTIC SHOCK [None]
